FAERS Safety Report 9398745 (Version 1)
Quarter: 2013Q3

REPORT INFORMATION
  Report Type: Spontaneous
  Country: FR (occurrence: FR)
  Receive Date: 20130712
  Receipt Date: 20130712
  Transmission Date: 20140515
  Serious: Yes (Other)
  Sender: FDA-Public Use
  Company Number: FR-TEVA-418371ISR

PATIENT
  Age: 49 Year
  Sex: Male

DRUGS (3)
  1. FUROSEMIDE [Suspect]
     Dosage: 80 MILLIGRAM DAILY;
     Route: 048
     Dates: start: 201304, end: 20130601
  2. ZOPICONE WINTHROP 7.5 MG, SCORED COATED TABLET [Concomitant]
     Dosage: 7.5 MILLIGRAM DAILY; LONG TERM, NO DETAILS TO: EARLY JUNE
     Route: 048
  3. NEXAVAR 200 MG, COATED TABLET [Concomitant]
     Dosage: 400 MILLIGRAM DAILY;
     Route: 048
     Dates: start: 201304

REACTIONS (5)
  - Fatigue [Recovering/Resolving]
  - Ascites [Recovering/Resolving]
  - Oliguria [Recovering/Resolving]
  - Somnolence [Unknown]
  - Dysuria [Unknown]
